FAERS Safety Report 7066019-X (Version None)
Quarter: 2010Q4

REPORT INFORMATION
  Report Type: 
  Country: None (occurrence: None)
  Receive Date: 20101027
  Receipt Date: 20100419
  Transmission Date: 20110411
  Serious: Yes (Other)
  Sender: FDA-Public Use
  Company Number: HQWYE227403NOV04

PATIENT
  Sex: Female
  Weight: 84.44 kg

DRUGS (8)
  1. PREMPRO [Suspect]
     Indication: PROPHYLAXIS
  2. PREMPRO [Suspect]
     Indication: OSTEOPOROSIS
  3. PREMPRO [Suspect]
     Indication: MENOPAUSAL SYMPTOMS
  4. SIMVASTATIN [Concomitant]
  5. LISINOPRIL [Concomitant]
  6. HYDROCHLOROTHIAZIDE [Concomitant]
  7. PREMARIN [Suspect]
  8. PROVERA [Suspect]

REACTIONS (1)
  - BREAST CANCER [None]
